FAERS Safety Report 7287449-7 (Version None)
Quarter: 2011Q1

REPORT INFORMATION
  Report Type: 
  Country: None (occurrence: None)
  Receive Date: 20110211
  Receipt Date: 20110203
  Transmission Date: 20110831
  Serious: Yes (Other)
  Sender: FDA-Public Use
  Company Number: DE-PFIZER INC-2011024729

PATIENT
  Age: 24 Year
  Sex: Male

DRUGS (6)
  1. HYDROCORTISONE [Suspect]
     Indication: HYPOPITUITARISM
     Dosage: UNK
     Dates: start: 19960401, end: 20001101
  2. HYDROCORTISONE [Suspect]
     Indication: BLOOD CORTICOTROPHIN DECREASED
  3. HUMAN GROWTH HORMONE, RECOMBINANT [Suspect]
     Dosage: UNK
     Dates: start: 19960401, end: 20001101
  4. HUMAN GROWTH HORMONE, RECOMBINANT [Suspect]
     Indication: HYPOPITUITARISM
     Dosage: UNK, UNK
     Dates: start: 19900101, end: 19960401
  5. THYROID [Concomitant]
     Indication: HYPOPITUITARISM
     Dosage: 50 UNK, UNK
     Dates: start: 19900101, end: 20001101
  6. DEPO-TESTOSTERONE [Concomitant]
     Indication: CRYPTORCHISM
     Dosage: 25 MG, MONTHLY
     Dates: start: 19920601, end: 20001101

REACTIONS (4)
  - VERTIGO [None]
  - FATIGUE [None]
  - OEDEMA [None]
  - ARTHRALGIA [None]
